FAERS Safety Report 8780037 (Version 1)
Quarter: 2012Q4

REPORT INFORMATION
  Report Type: 
  Country: US (occurrence: US)
  Receive Date: 20120912
  Receipt Date: 20120912
  Transmission Date: 20130627
  Serious: Yes (Other)
  Sender: FDA-Public Use
  Company Number: PHEH2012US017567

PATIENT
  Sex: Male

DRUGS (2)
  1. DIOVAN [Suspect]
     Dosage: 320 mg, UNK
  2. NOVOLOG [Concomitant]

REACTIONS (2)
  - Neoplasm malignant [Unknown]
  - Diabetes mellitus [Unknown]
